FAERS Safety Report 12963068 (Version 1)
Quarter: 2016Q4

REPORT INFORMATION
  Report Type: Spontaneous
  Country: US (occurrence: US)
  Receive Date: 20161122
  Receipt Date: 20161122
  Transmission Date: 20170207
  Serious: No
  Sender: FDA-Public Use
  Company Number: US-009507513-1610USA016505

PATIENT
  Sex: Female
  Weight: 52.15 kg

DRUGS (1)
  1. IMPLANON [Suspect]
     Active Substance: ETONOGESTREL
     Dosage: IMPLANT IN LEFT ARM
     Route: 059
     Dates: start: 2010

REACTIONS (8)
  - Implant site pain [Unknown]
  - Blood pressure increased [Unknown]
  - Heart rate increased [Unknown]
  - Muscle spasms [Unknown]
  - Menorrhagia [Unknown]
  - Incorrect drug administration duration [Unknown]
  - Asthenia [Unknown]
  - Sluggishness [Unknown]

NARRATIVE: CASE EVENT DATE: 2013
